FAERS Safety Report 21691846 (Version 1)
Quarter: 2022Q4

REPORT INFORMATION
  Report Type: Report from Study
  Country: CO (occurrence: CO)
  Receive Date: 20221207
  Receipt Date: 20221207
  Transmission Date: 20230113
  Serious: Yes (Death)
  Sender: FDA-Public Use
  Company Number: CO-JNJFOC-20221202357

PATIENT
  Age: 56 Year
  Sex: Male
  Weight: 50 kg

DRUGS (1)
  1. IMBRUVICA [Suspect]
     Active Substance: IBRUTINIB
     Indication: Mantle cell lymphoma
     Route: 048
     Dates: start: 20221012, end: 20221028

REACTIONS (1)
  - Death [Fatal]

NARRATIVE: CASE EVENT DATE: 20221028
